FAERS Safety Report 6882900-6 (Version None)
Quarter: 2010Q3

REPORT INFORMATION
  Report Type: 
  Country: None (occurrence: None)
  Receive Date: 20100729
  Receipt Date: 20100712
  Transmission Date: 20110219
  Serious: No
  Sender: FDA-Public Use
  Company Number: US-B.I. PHARMACEUTICALS,INC./RIDGEFIELD-2010-BP-07012BP

PATIENT
  Age: 54 Year
  Sex: Female
  Weight: 158.76 kg

DRUGS (6)
  1. MICARDIS [Suspect]
     Indication: HYPERTENSION
     Dosage: 80 MG
     Route: 048
     Dates: start: 20100609, end: 20100616
  2. LASIX [Concomitant]
     Dosage: 40 MG
     Dates: start: 20030706
  3. KLOR-CON [Concomitant]
     Dosage: 20 MG
     Dates: start: 20030706
  4. PROCARDIA [Concomitant]
     Dosage: 30 MG
     Dates: start: 20030706
  5. SINGULAIR [Concomitant]
     Dosage: 10 MG
     Dates: start: 20030706
  6. ADVAIR DISKUS 100/50 [Concomitant]
     Dates: start: 20030706

REACTIONS (2)
  - BLOOD PRESSURE INCREASED [None]
  - BLOOD PRESSURE SYSTOLIC INCREASED [None]
